FAERS Safety Report 19461176 (Version 2)
Quarter: 2021Q3

REPORT INFORMATION
  Report Type: Spontaneous
  Country: JP (occurrence: JP)
  Receive Date: 20210625
  Receipt Date: 20210702
  Transmission Date: 20211014
  Serious: Yes (Hospitalization, Other)
  Sender: FDA-Public Use
  Company Number: JP-STRIDES ARCOLAB LIMITED-2021SP006824

PATIENT
  Age: 61 Year
  Sex: Male
  Weight: 55 kg

DRUGS (10)
  1. DEXAMETHASONE. [Suspect]
     Active Substance: DEXAMETHASONE
     Indication: DIFFUSE LARGE B-CELL LYMPHOMA STAGE II
     Dosage: UNK, 3 CYCLE, R?DEVIC THERAPY
     Route: 041
  2. VINCRISTINE [Suspect]
     Active Substance: VINCRISTINE
     Indication: DIFFUSE LARGE B-CELL LYMPHOMA STAGE II
     Dosage: UNK, 8 CYCLE, R?THP?COP, INFUSION
     Route: 041
  3. PREDNISOLONE. [Suspect]
     Active Substance: PREDNISOLONE
     Indication: DIFFUSE LARGE B-CELL LYMPHOMA STAGE II
     Dosage: UNK, 8 CYCLES, R?THP?COP, INFUSION
     Route: 041
  4. PIRARUBICIN [Suspect]
     Active Substance: PIRARUBICIN
     Indication: DIFFUSE LARGE B-CELL LYMPHOMA STAGE II
     Dosage: 400 MILLIGRAM/SQ. METER, 8 CYCLES, R?THP?COP, INFUSION
     Route: 041
  5. ETOPOSIDE. [Suspect]
     Active Substance: ETOPOSIDE
     Indication: DIFFUSE LARGE B-CELL LYMPHOMA STAGE II
     Dosage: UNK,3 CYCLE, R?DEVIC THERAPY, INFUSION
     Route: 041
  6. CARBOPLATIN. [Suspect]
     Active Substance: CARBOPLATIN
     Indication: DIFFUSE LARGE B-CELL LYMPHOMA STAGE II
     Dosage: UNK, 3 CYCLE, R?DEVIC THERAPY, INFUSION
     Route: 041
  7. IFOSFAMIDE. [Suspect]
     Active Substance: IFOSFAMIDE
     Indication: DIFFUSE LARGE B-CELL LYMPHOMA STAGE II
     Dosage: 3.4 GRAM PER HOUR PER SQUARE METRE, 3 CYCLES, R?DEVIC THERAPY, INFUSION
     Route: 041
  8. RITUXIMAB. [Suspect]
     Active Substance: RITUXIMAB
     Dosage: UNK, 8 CYCLES, R?THP?COP
     Route: 041
  9. RITUXIMAB. [Suspect]
     Active Substance: RITUXIMAB
     Indication: DIFFUSE LARGE B-CELL LYMPHOMA STAGE II
     Dosage: UNK, 3 CYCLE, R?DEVIC THERAPY, INFUSION
     Route: 041
  10. CYCLOPHOSPHAMIDE. [Suspect]
     Active Substance: CYCLOPHOSPHAMIDE
     Indication: DIFFUSE LARGE B-CELL LYMPHOMA STAGE II
     Dosage: 6000 MILLIGRAM/SQ. METER, 8 CYCLE, R?THP?COP
     Route: 041

REACTIONS (12)
  - Mitral valve incompetence [Recovered/Resolved]
  - Pleural effusion [Recovered/Resolved]
  - Cardiac failure [Recovered/Resolved]
  - Sinus tachycardia [Recovered/Resolved]
  - Blood creatinine increased [Recovered/Resolved]
  - Cardiac dysfunction [Recovered/Resolved]
  - Aspartate aminotransferase increased [Recovered/Resolved]
  - Cardiomegaly [Recovered/Resolved]
  - Blood bilirubin increased [Recovered/Resolved]
  - Alanine aminotransferase increased [Recovered/Resolved]
  - Off label use [Unknown]
  - Blood urea increased [Recovered/Resolved]
